FAERS Safety Report 7985285-7 (Version None)
Quarter: 2011Q4

REPORT INFORMATION
  Report Type: 
  Country: None (occurrence: None)
  Receive Date: 20111216
  Receipt Date: 20111017
  Transmission Date: 20120403
  Serious: Yes (Life-Threatening, Hospitalization)
  Sender: FDA-Public Use
  Company Number: US-ROCHE-1005300

PATIENT
  Age: 52 Year
  Sex: Female
  Weight: 72 kg

DRUGS (2)
  1. AVASTIN [Suspect]
     Indication: GLIOBLASTOMA MULTIFORME
     Dosage: 10 MG/KG OF ACTUAL BODY WEIGHT IV OVER 30-90 MIN ON DAYS 1 AND 15
     Route: 042
     Dates: start: 20110510
  2. TEMOZOLOMIDE [Suspect]
     Indication: GLIOBLASTOMA MULTIFORME
     Dosage: 150-200 MG/M2 PO ON DAYS 1-5
     Route: 048

REACTIONS (3)
  - COGNITIVE DISORDER [None]
  - DYSPHAGIA [None]
  - CONVULSION [None]
